FAERS Safety Report 6406328-8 (Version None)
Quarter: 2009Q4

REPORT INFORMATION
  Report Type: 
  Country: None (occurrence: None)
  Receive Date: 20091019
  Receipt Date: 20091014
  Transmission Date: 20100525
  Serious: Yes (Life-Threatening, Hospitalization)
  Sender: FDA-Public Use
  Company Number: PHHY2009JP11823

PATIENT
  Age: 55 Year
  Sex: Male
  Weight: 57 kg

DRUGS (8)
  1. GLEEVEC [Suspect]
     Indication: ACUTE LYMPHOCYTIC LEUKAEMIA
     Dosage: 600 MG/DAY
     Route: 048
     Dates: start: 20080101, end: 20080101
  2. GLEEVEC [Suspect]
     Dosage: 400 MG/DAY
     Route: 048
     Dates: start: 20080101
  3. GLEEVEC [Suspect]
     Dosage: 400 MG/DAY
     Route: 048
     Dates: end: 20090302
  4. NEORAL [Suspect]
     Dosage: 25 MG, UNK
     Route: 048
     Dates: start: 20081201
  5. WARFARIN SODIUM [Concomitant]
     Indication: VENA CAVA THROMBOSIS
     Dosage: 2 MG, UNK
     Route: 048
     Dates: start: 20081201
  6. ITRIZOLE [Concomitant]
     Indication: TRANSPLANT
     Dosage: 100 MG, UNK
     Route: 048
     Dates: start: 20081201
  7. BAKTAR [Concomitant]
     Indication: TRANSPLANT
     Dosage: 2 DF, UNK
     Route: 048
     Dates: start: 20081201
  8. GASTER [Concomitant]
     Indication: PROPHYLAXIS
     Dosage: 2 DF, UNK
     Route: 048

REACTIONS (6)
  - ACUTE RESPIRATORY DISTRESS SYNDROME [None]
  - COUGH [None]
  - INTERSTITIAL LUNG DISEASE [None]
  - MECHANICAL VENTILATION [None]
  - OXYGEN SATURATION DECREASED [None]
  - PYREXIA [None]
